FAERS Safety Report 9387715 (Version 1)
Quarter: 2013Q3

REPORT INFORMATION
  Report Type: Spontaneous
  Country: US (occurrence: US)
  Receive Date: 20130708
  Receipt Date: 20130708
  Transmission Date: 20140515
  Serious: No
  Sender: FDA-Public Use
  Company Number: US-PFIZER INC-2013198425

PATIENT
  Age: 80 Year
  Sex: Male

DRUGS (6)
  1. INLYTA [Suspect]
     Indication: RENAL CANCER
     Dosage: UNK
     Route: 048
     Dates: start: 20130606
  2. TRAMADOL [Concomitant]
     Indication: SPONDYLITIS
     Dosage: UNK, 2X/DAY
  3. GLUCOTROL XL [Concomitant]
     Indication: DIABETES MELLITUS
     Dosage: 10 MG, UNK
  4. GLIPIZIDE [Concomitant]
     Indication: DIABETES MELLITUS
     Dosage: UNK
  5. LANTUS [Concomitant]
     Indication: DIABETES MELLITUS
     Dosage: 24 UNITS, 1X/DAY
  6. NOVOLOG [Concomitant]
     Indication: DIABETES MELLITUS
     Dosage: 11 UNITS IN THE MORNING, 10 UNITS AT BREAKFAST AND 10 UNITS AT SUPPER

REACTIONS (3)
  - Feeling abnormal [Unknown]
  - Body height decreased [Unknown]
  - Blood glucose decreased [Unknown]
